FAERS Safety Report 20990224 (Version 1)
Quarter: 2022Q2

REPORT INFORMATION
  Report Type: Spontaneous
  Country: IT (occurrence: IT)
  Receive Date: 20220622
  Receipt Date: 20220622
  Transmission Date: 20220721
  Serious: Yes (Other)
  Sender: FDA-Public Use
  Company Number: IT-VALIDUS PHARMACEUTICALS LLC-IT-VDP-2022-015586

PATIENT

DRUGS (2)
  1. LASIX [Suspect]
     Active Substance: FUROSEMIDE
     Indication: Drug abuse
     Dosage: 300 MG, TOTAL
     Route: 048
     Dates: start: 20220526, end: 20220526
  2. TELMISARTAN [Suspect]
     Active Substance: TELMISARTAN
     Indication: Drug abuse
     Dosage: 240 MG, TOTAL
     Route: 048
     Dates: start: 20220526, end: 20220526

REACTIONS (3)
  - Poisoning [Recovering/Resolving]
  - Abdominal pain [Recovering/Resolving]
  - Headache [Recovering/Resolving]

NARRATIVE: CASE EVENT DATE: 20220526
